FAERS Safety Report 8901209 (Version 2)
Quarter: 2012Q4

REPORT INFORMATION
  Report Type: 
  Country: US (occurrence: US)
  Receive Date: 20121109
  Receipt Date: 20121218
  Transmission Date: 20130627
  Serious: Yes (Death, Hospitalization)
  Sender: FDA-Public Use
  Company Number: US-PFIZER INC-2012278458

PATIENT
  Age: 60 Year
  Sex: Female
  Weight: 61 kg

DRUGS (7)
  1. AROMASIN [Suspect]
     Indication: BREAST CANCER
     Dosage: 25 mg, 1x/day
     Route: 048
     Dates: start: 20120601
  2. NORCO [Concomitant]
     Indication: PAIN
     Dosage: 10-325 mg, take 2 tabs every 6 hours as needed
     Route: 048
     Dates: start: 20120808
  3. DAKIN^S SOLUTION [Concomitant]
     Dosage: Apply daily to wound until clear
     Dates: start: 20120724
  4. DURAGESIC [Concomitant]
     Dosage: 25 mcg/hr patch, 1 patch every 72 hours
     Route: 062
     Dates: start: 20120724
  5. DECADRON [Concomitant]
     Dosage: 4 mg, 2x/day
     Route: 048
     Dates: start: 20120711
  6. PERCOCET 10 [Concomitant]
     Indication: PAIN
     Dosage: 10-325 mg per tab, take 1 tab every 4 hours as needed
     Route: 048
     Dates: start: 20120515
  7. ZOFRAN [Concomitant]
     Indication: NAUSEA
     Dosage: 8 mg, take 1 tab by mouth evey 8 hours as needed for nausea for 6 doses
     Route: 048

REACTIONS (10)
  - Disease progression [Fatal]
  - Breast cancer [Fatal]
  - Sepsis [Recovered/Resolved]
  - Neutropenia [Not Recovered/Not Resolved]
  - Fatigue [Not Recovered/Not Resolved]
  - Musculoskeletal chest pain [Not Recovered/Not Resolved]
  - Pleural effusion [Unknown]
  - Oedema peripheral [Unknown]
  - Lymphoedema [Unknown]
  - Diarrhoea [Recovered/Resolved]
